FAERS Safety Report 14612648 (Version 7)
Quarter: 2018Q3

REPORT INFORMATION
  Report Type: Report from Study
  Country: CA (occurrence: CA)
  Receive Date: 20180308
  Receipt Date: 20180703
  Transmission Date: 20181010
  Serious: Yes (Hospitalization, Other)
  Sender: FDA-Public Use
  Company Number: CA-GLAXOSMITHKLINE-CA2017GSK193650

PATIENT
  Age: 61 Year
  Sex: Female

DRUGS (10)
  1. PULMICORT TURBUHALER [Suspect]
     Active Substance: BUDESONIDE
     Indication: PRODUCT USED FOR UNKNOWN INDICATION
     Dosage: UNK
     Dates: start: 20180117
  2. MEPOLIZUMAB [Suspect]
     Active Substance: MEPOLIZUMAB
     Dosage: 100 MG, Z
     Route: 042
  3. MEPOLIZUMAB [Suspect]
     Active Substance: MEPOLIZUMAB
     Dosage: 100 MG, Z
     Route: 042
  4. MEPOLIZUMAB [Suspect]
     Active Substance: MEPOLIZUMAB
     Indication: ASTHMA
     Dosage: 100 MG, Z
     Route: 042
     Dates: start: 20171207
  5. MEPOLIZUMAB [Suspect]
     Active Substance: MEPOLIZUMAB
     Dosage: 100 MG, Z
     Route: 042
  6. MEPOLIZUMAB [Suspect]
     Active Substance: MEPOLIZUMAB
     Dosage: 100 MG, Z
     Route: 042
  7. CORTISON [Suspect]
     Active Substance: CORTISONE ACETATE
     Indication: PRODUCT USED FOR UNKNOWN INDICATION
     Dosage: UNK
  8. MEPOLIZUMAB [Suspect]
     Active Substance: MEPOLIZUMAB
     Dosage: 100 MG, Z
     Route: 042
  9. VENTOLIN [Suspect]
     Active Substance: ALBUTEROL SULFATE
     Indication: ASTHMA
     Dosage: UNK
  10. ALVESCO [Suspect]
     Active Substance: CICLESONIDE
     Indication: PRODUCT USED FOR UNKNOWN INDICATION
     Dosage: UNK
     Dates: start: 20180117

REACTIONS (24)
  - Feeling hot [Unknown]
  - Constipation [Unknown]
  - Knee arthroplasty [Unknown]
  - Eye swelling [Unknown]
  - Cough [Unknown]
  - Pyrexia [Unknown]
  - Joint stiffness [Unknown]
  - Procedural pain [Not Recovered/Not Resolved]
  - Asthma [Unknown]
  - Productive cough [Unknown]
  - Joint swelling [Unknown]
  - Fatigue [Not Recovered/Not Resolved]
  - Sinusitis [Unknown]
  - Respiratory symptom [Recovered/Resolved]
  - Dyspnoea [Unknown]
  - Pain [Not Recovered/Not Resolved]
  - Erythema [Unknown]
  - Hypertension [Unknown]
  - Gait disturbance [Unknown]
  - Arthralgia [Unknown]
  - Asthenia [Unknown]
  - Back pain [Not Recovered/Not Resolved]
  - Anaemia [Unknown]
  - Decreased immune responsiveness [Unknown]

NARRATIVE: CASE EVENT DATE: 20180206
